FAERS Safety Report 5949488-5 (Version None)
Quarter: 2008Q4

REPORT INFORMATION
  Report Type: 
  Country: None (occurrence: None)
  Receive Date: 20081112
  Receipt Date: 20081104
  Transmission Date: 20090506
  Serious: Yes (Other)
  Sender: FDA-Public Use
  Company Number: PHHY2008BR27343

PATIENT
  Sex: Male
  Weight: 70 kg

DRUGS (2)
  1. TRILEPTAL [Suspect]
     Indication: EPILEPSY
     Dosage: 300 MG, BID
     Route: 048
     Dates: start: 20000101
  2. TRILEPTAL [Suspect]
     Dosage: 300 MG, ONE TAB IN MORNING AND 2 TAB AT NIGHT
     Dates: start: 20080901

REACTIONS (5)
  - AGITATION [None]
  - DRUG ADMINISTRATION ERROR [None]
  - DRUG DOSE OMISSION [None]
  - DRUG INEFFECTIVE [None]
  - ELECTROENCEPHALOGRAM ABNORMAL [None]
